FAERS Safety Report 4564432-3 (Version None)
Quarter: 2005Q1

REPORT INFORMATION
  Report Type: 
  Country: None (occurrence: None)
  Receive Date: 20050128
  Receipt Date: 20040907
  Transmission Date: 20050727
  Serious: No
  Sender: FDA-Public Use
  Company Number: US-GLAXOSMITHKLINE-A0524758A

PATIENT
  Age: 36 Year
  Sex: Male

DRUGS (5)
  1. EPIVIR [Suspect]
     Indication: HIV INFECTION
     Dosage: 150MG TWICE PER DAY
     Route: 048
     Dates: start: 20040610
  2. VIREAD [Concomitant]
  3. REYATAZ [Concomitant]
  4. ABACAVIR [Concomitant]
  5. RITONAVIR [Concomitant]

REACTIONS (1)
  - STOMATITIS [None]
